FAERS Safety Report 23946425 (Version 1)
Quarter: 2024Q2

REPORT INFORMATION
  Report Type: Report from Study
  Country: GB (occurrence: GB)
  Receive Date: 20240606
  Receipt Date: 20240606
  Transmission Date: 20240716
  Serious: Yes (Hospitalization, Other)
  Sender: FDA-Public Use
  Company Number: GB-ALIMERA SCIENCES LIMITED-GB-IL-2016-002776

PATIENT

DRUGS (4)
  1. ILUVIEN [Suspect]
     Active Substance: FLUOCINOLONE ACETONIDE
     Indication: Diabetic retinal oedema
     Dosage: 0.25 ?G, QD, RIGHT EYE
     Route: 031
     Dates: start: 20141121
  2. TRIAMCINOLONE [Concomitant]
     Active Substance: TRIAMCINOLONE
     Indication: Diabetic retinal oedema
     Dosage: UNK, 4X
     Dates: start: 2005, end: 2014
  3. LUCENTIS [Concomitant]
     Active Substance: RANIBIZUMAB
     Indication: Diabetic retinal oedema
     Dosage: UNK, 3X
     Dates: start: 2005, end: 2014
  4. BIMATOPROST\TIMOLOL [Suspect]
     Active Substance: BIMATOPROST\TIMOLOL
     Indication: Intraocular pressure increased
     Dosage: UNK
     Dates: start: 20150903, end: 20160802

REACTIONS (3)
  - Intraocular pressure increased [Not Recovered/Not Resolved]
  - Trabeculectomy [Recovered/Resolved]
  - Scleral operation [Unknown]

NARRATIVE: CASE EVENT DATE: 20160629
